FAERS Safety Report 8228566-4 (Version None)
Quarter: 2012Q1

REPORT INFORMATION
  Report Type: 
  Country: None (occurrence: None)
  Receive Date: 20120322
  Receipt Date: 20110712
  Transmission Date: 20120608
  Serious: Yes (Other)
  Sender: FDA-Public Use
  Company Number: US-BRISTOL-MYERS SQUIBB COMPANY-15657273

PATIENT
  Age: 73 Year
  Sex: Male

DRUGS (7)
  1. LISINOPRIL [Concomitant]
     Dosage: TABLET
  2. WARFARIN SODIUM [Concomitant]
     Dosage: TABLET
  3. CHOLESTYRAMINE [Concomitant]
     Dosage: MISC
  4. PERCOCET [Concomitant]
     Dosage: 1DF=5MG+325MG.TABLET
  5. ERBITUX [Suspect]
  6. IRINOTECAN HCL [Suspect]
  7. OXYCODONE HCL [Concomitant]
     Dosage: TABLET

REACTIONS (1)
  - INFUSION RELATED REACTION [None]
